FAERS Safety Report 5767385-5 (Version None)
Quarter: 2008Q2

REPORT INFORMATION
  Report Type: 
  Country: None (occurrence: None)
  Receive Date: 20080612
  Receipt Date: 20080610
  Transmission Date: 20081010
  Serious: Yes (Death)
  Sender: FDA-Public Use
  Company Number: B0523703A

PATIENT
  Age: 18 Year
  Sex: Male

DRUGS (1)
  1. SERETIDE [Suspect]
     Indication: ASTHMA
     Dosage: 1PUFF SINGLE DOSE
     Route: 065
     Dates: start: 20080528, end: 20080528

REACTIONS (2)
  - RESPIRATORY ARREST [None]
  - RESPIRATORY FAILURE [None]
